FAERS Safety Report 20292180 (Version 1)
Quarter: 2022Q1

REPORT INFORMATION
  Report Type: Spontaneous
  Country: US (occurrence: US)
  Receive Date: 20220104
  Receipt Date: 20220104
  Transmission Date: 20220423
  Serious: No
  Sender: FDA-Public Use
  Company Number: US-009507513-2201USA000106

PATIENT
  Age: 51 Year
  Sex: Male

DRUGS (2)
  1. KEYTRUDA [Suspect]
     Active Substance: PEMBROLIZUMAB
     Indication: Uveal melanoma
  2. TEMODAR [Suspect]
     Active Substance: TEMOZOLOMIDE
     Indication: Uveal melanoma
     Route: 048

REACTIONS (1)
  - Product use in unapproved indication [Unknown]
